FAERS Safety Report 22525229 (Version 1)
Quarter: 2023Q2

REPORT INFORMATION
  Report Type: Spontaneous
  Country: US (occurrence: US)
  Receive Date: 20230606
  Receipt Date: 20230606
  Transmission Date: 20230722
  Serious: Yes (Other)
  Sender: FDA-Public Use
  Company Number: US-ELI_LILLY_AND_COMPANY-US202305017660

PATIENT
  Age: 20 Year
  Sex: Female

DRUGS (2)
  1. EMGALITY [Suspect]
     Active Substance: GALCANEZUMAB-GNLM
     Indication: Product used for unknown indication
     Dosage: 240 MG, SINGLE (LOADING DOSE)
     Route: 058
     Dates: start: 20230420
  2. EMGALITY [Suspect]
     Active Substance: GALCANEZUMAB-GNLM
     Dosage: 120 MG, MONTHLY (1/M)
     Route: 058
     Dates: start: 20230518

REACTIONS (8)
  - Haematochezia [Unknown]
  - Feeling abnormal [Unknown]
  - Tremor [Unknown]
  - Decreased appetite [Unknown]
  - Frequent bowel movements [Unknown]
  - Nausea [Unknown]
  - Weight decreased [Unknown]
  - Constipation [Unknown]

NARRATIVE: CASE EVENT DATE: 20230501
